FAERS Safety Report 4639011-X (Version None)
Quarter: 2005Q2

REPORT INFORMATION
  Report Type: 
  Country: None (occurrence: None)
  Receive Date: 20050419
  Receipt Date: 20050114
  Transmission Date: 20051028
  Serious: Yes (Life-Threatening, Hospitalization, Disabling)
  Sender: FDA-Public Use
  Company Number: AU-ROCHE-392408

PATIENT
  Age: 49 Year
  Sex: Male
  Weight: 80 kg

DRUGS (10)
  1. VALIUM [Suspect]
     Indication: DRUG USE FOR UNKNOWN INDICATION
     Route: 065
  2. PEG-INTERFERON ALFA 2A (RO 25-8310) [Suspect]
     Route: 058
     Dates: start: 20041110
  3. RIBAVIRIN [Suspect]
     Route: 048
     Dates: start: 20041110
  4. LAMIVUDINE [Concomitant]
     Dates: start: 20030815
  5. KALETRA [Concomitant]
     Dates: start: 20030815
  6. TENOFOVIR [Concomitant]
     Dates: start: 20030815
  7. LEXAPRO [Concomitant]
     Dosage: DOSE INCREASED FROM 10 MG TO 20 MG STARTING 20 JAN 2005 (EST.)
     Dates: start: 20041015
  8. KAPANOL [Concomitant]
  9. UNSPECIFIED DRUG [Concomitant]
     Dosage: DRUG NAME REPORTED AS MIDAZOLONE.
  10. COLOXYL WITH SENNA [Concomitant]

REACTIONS (5)
  - DILATATION VENTRICULAR [None]
  - FAMILY STRESS [None]
  - MULTIPLE DRUG OVERDOSE [None]
  - PULMONARY EMBOLISM [None]
  - SUICIDE ATTEMPT [None]
